FAERS Safety Report 10541543 (Version 4)
Quarter: 2017Q3

REPORT INFORMATION
  Report Type: Report from Study
  Country: JP (occurrence: JP)
  Receive Date: 20141024
  Receipt Date: 20170830
  Transmission Date: 20171127
  Serious: Yes (Other)
  Sender: FDA-Public Use
  Company Number: JP-INCYTE CORPORATION-2014IN003164

PATIENT

DRUGS (2)
  1. JAKAVI [Suspect]
     Active Substance: RUXOLITINIB
     Dosage: 10 MG, BID
     Route: 048
     Dates: start: 20141016
  2. JAKAVI [Suspect]
     Active Substance: RUXOLITINIB
     Indication: MYELOFIBROSIS
     Dosage: 10 MG, BID
     Route: 048
     Dates: start: 20140925, end: 20141008

REACTIONS (4)
  - Haemoglobin decreased [Recovering/Resolving]
  - Blood lactate dehydrogenase increased [Recovering/Resolving]
  - Gamma-glutamyltransferase increased [Not Recovered/Not Resolved]
  - Blood alkaline phosphatase increased [Recovering/Resolving]

NARRATIVE: CASE EVENT DATE: 20141001
